FAERS Safety Report 7715761-3 (Version None)
Quarter: 2011Q3

REPORT INFORMATION
  Report Type: 
  Country: None (occurrence: None)
  Receive Date: 20110823
  Receipt Date: 20110811
  Transmission Date: 20111222
  Serious: Yes (Hospitalization)
  Sender: FDA-Public Use
  Company Number: 2011AT000300

PATIENT
  Age: 57 Year
  Sex: Male

DRUGS (1)
  1. THEOPHYLLINE [Suspect]
     Indication: CHRONIC OBSTRUCTIVE PULMONARY DISEASE

REACTIONS (20)
  - MYDRIASIS [None]
  - FATIGUE [None]
  - SUPRAVENTRICULAR TACHYCARDIA [None]
  - METABOLIC ACIDOSIS [None]
  - MUSCLE SPASMS [None]
  - HAEMODIALYSIS [None]
  - SOMNOLENCE [None]
  - RESPIRATORY ALKALOSIS [None]
  - TOXICITY TO VARIOUS AGENTS [None]
  - HAEMATEMESIS [None]
  - PUPILLARY REFLEX IMPAIRED [None]
  - HYPERGLYCAEMIA [None]
  - AMINO ACID LEVEL DECREASED [None]
  - OVERDOSE [None]
  - COMMUNICATION DISORDER [None]
  - HYPOKALAEMIA [None]
  - RENAL FAILURE ACUTE [None]
  - DISORIENTATION [None]
  - PALLOR [None]
  - SEPSIS [None]
